FAERS Safety Report 6139839-3 (Version None)
Quarter: 2009Q1

REPORT INFORMATION
  Report Type: 
  Country: None (occurrence: None)
  Receive Date: 20090330
  Receipt Date: 20090330
  Transmission Date: 20090719
  Serious: No
  Sender: FDA-Public Use
  Company Number: None

PATIENT
  Age: 78 Year
  Sex: Male

DRUGS (1)
  1. ASPIRIN [Suspect]
     Indication: CORONARY ARTERY DISEASE
     Dosage: 81 MG EVERY DAY PO
     Route: 048
     Dates: end: 20090319

REACTIONS (5)
  - ANAEMIA [None]
  - CHANGE OF BOWEL HABIT [None]
  - DIARRHOEA [None]
  - DYSPNOEA [None]
  - GASTRIC HAEMORRHAGE [None]
